FAERS Safety Report 6072259-9 (Version None)
Quarter: 2009Q1

REPORT INFORMATION
  Report Type: 
  Country: None (occurrence: None)
  Receive Date: 20090206
  Receipt Date: 20090206
  Transmission Date: 20090719
  Serious: No
  Sender: FDA-Public Use
  Company Number: None

PATIENT
  Age: 65 Year
  Sex: Male
  Weight: 87.9978 kg

DRUGS (2)
  1. SIMVASTATIN [Suspect]
     Indication: BLOOD CHOLESTEROL INCREASED
     Dosage: 40 MG 1 X DAILY PO
     Route: 048
     Dates: start: 20080401, end: 20081105
  2. SIMVASTATIN [Suspect]
     Indication: BLOOD TRIGLYCERIDES INCREASED
     Dosage: 40 MG 1 X DAILY PO
     Route: 048
     Dates: start: 20080401, end: 20081105

REACTIONS (19)
  - ABDOMINAL DISTENSION [None]
  - AMNESIA [None]
  - ANURIA [None]
  - CONFUSIONAL STATE [None]
  - DYSARTHRIA [None]
  - DYSSTASIA [None]
  - FALL [None]
  - FEELING ABNORMAL [None]
  - HYPOPHAGIA [None]
  - LOCAL SWELLING [None]
  - MUSCULAR WEAKNESS [None]
  - MUSCULOSKELETAL PAIN [None]
  - OEDEMA PERIPHERAL [None]
  - PAIN IN EXTREMITY [None]
  - PERFORMANCE STATUS DECREASED [None]
  - RENAL PAIN [None]
  - SWELLING FACE [None]
  - WALKING AID USER [None]
  - WEIGHT INCREASED [None]
